FAERS Safety Report 25554158 (Version 1)
Quarter: 2025Q3

REPORT INFORMATION
  Report Type: Spontaneous
  Country: US (occurrence: None)
  Receive Date: 20250714
  Receipt Date: 20250714
  Transmission Date: 20251021
  Serious: Yes (Disabling, Other)
  Sender: FDA-CTU
  Company Number: None

PATIENT
  Age: 54 Year
  Sex: Female
  Weight: 101.25 kg

DRUGS (1)
  1. FLUOXETINE [Suspect]
     Active Substance: FLUOXETINE HYDROCHLORIDE
     Indication: Major depression
     Dates: start: 20080101, end: 20221030

REACTIONS (2)
  - Withdrawal syndrome [None]
  - Agoraphobia [None]

NARRATIVE: CASE EVENT DATE: 20220801
